FAERS Safety Report 22034201 (Version 1)
Quarter: 2023Q1

REPORT INFORMATION
  Report Type: Spontaneous
  Country: GB (occurrence: GB)
  Receive Date: 20230224
  Receipt Date: 20230224
  Transmission Date: 20230417
  Serious: Yes (Other)
  Sender: FDA-Public Use
  Company Number: None

PATIENT
  Age: 54 Year
  Sex: Female
  Weight: 59 kg

DRUGS (6)
  1. LANSOPRAZOLE [Suspect]
     Active Substance: LANSOPRAZOLE
     Indication: Product used for unknown indication
     Dosage: 30 MILLIGRAM, QD (EACH MORNING )
     Route: 065
     Dates: start: 20221230, end: 20230127
  2. PANTOPRAZOLE [Suspect]
     Active Substance: PANTOPRAZOLE
     Indication: Product used for unknown indication
     Dosage: 20 MILLIGRAM, QD (EACH MORNING)
     Route: 065
     Dates: start: 20230102, end: 20230127
  3. ESTRADIOL [Concomitant]
     Active Substance: ESTRADIOL
     Indication: Hormone replacement therapy
     Dosage: 1 DOSAGE FORM, Q2W (25MICROGRAMS/24HOURS )
     Route: 065
     Dates: start: 20221109, end: 20221222
  4. PROGESTERONE [Concomitant]
     Active Substance: PROGESTERONE
     Indication: Hormone replacement therapy
     Dosage: 100 MILLIGRAM, QD
     Route: 065
     Dates: start: 20221109, end: 20221222
  5. SODIUM ALGINATE [Concomitant]
     Active Substance: SODIUM ALGINATE
     Dosage: 1 GRAM (500MG/5ML, 10ML AFTER MEALS AND 10MLS AT BEDTIME)
     Route: 048
     Dates: start: 20230104
  6. SODIUM ALGINATE [Concomitant]
     Active Substance: SODIUM ALGINATE
     Dosage: 200 MILLIGRAM (100MG/5ML , 10ML AFTER MEALS AND 10MLS AT BEDTIME)
     Route: 048
     Dates: start: 20230104

REACTIONS (4)
  - Subacute cutaneous lupus erythematosus [Unknown]
  - Rash [Unknown]
  - Dry skin [Unknown]
  - Skin exfoliation [Unknown]
